FAERS Safety Report 4482257-4 (Version None)
Quarter: 2004Q4

REPORT INFORMATION
  Report Type: 
  Country: None (occurrence: None)
  Receive Date: 20041022
  Receipt Date: 20041014
  Transmission Date: 20050328
  Serious: Yes (Hospitalization)
  Sender: FDA-Public Use
  Company Number: 200413883FR

PATIENT
  Age: 58 Year
  Sex: Male

DRUGS (4)
  1. PIRILENE [Suspect]
     Indication: INTERVERTEBRAL DISCITIS
     Route: 048
     Dates: start: 20040501, end: 20040513
  2. RIFADIN [Suspect]
     Indication: INTERVERTEBRAL DISCITIS
     Route: 048
     Dates: start: 20040501, end: 20040513
  3. MYAMBUTOL [Suspect]
     Indication: INTERVERTEBRAL DISCITIS
     Route: 048
     Dates: start: 20040501, end: 20040513
  4. RIMIFON [Suspect]
     Indication: INTERVERTEBRAL DISCITIS
     Route: 048
     Dates: start: 20040501, end: 20040513

REACTIONS (6)
  - BLOOD ALBUMIN INCREASED [None]
  - HEPATIC CIRRHOSIS [None]
  - HEPATIC ENCEPHALOPATHY [None]
  - HEPATIC FAILURE [None]
  - PORTAL HYPERTENSION [None]
  - PROTHROMBIN TIME PROLONGED [None]
